FAERS Safety Report 21982485 (Version 1)
Quarter: 2023Q1

REPORT INFORMATION
  Report Type: Spontaneous
  Country: US (occurrence: US)
  Receive Date: 20230213
  Receipt Date: 20230213
  Transmission Date: 20230418
  Serious: No
  Sender: FDA-Public Use
  Company Number: US-TAKEDA-2023TUS015107

PATIENT
  Sex: Female
  Weight: 57 kg

DRUGS (4)
  1. MOTEGRITY [Suspect]
     Active Substance: PRUCALOPRIDE SUCCINATE
     Indication: Constipation
     Dosage: 2 MILLIGRAM
     Route: 065
     Dates: start: 202211
  2. MOTEGRITY [Suspect]
     Active Substance: PRUCALOPRIDE SUCCINATE
     Indication: Functional gastrointestinal disorder
  3. MIRTAZAPINE [Concomitant]
     Active Substance: MIRTAZAPINE
  4. DULOXETINE [Concomitant]
     Active Substance: DULOXETINE

REACTIONS (2)
  - Gastrointestinal pain [Unknown]
  - Diarrhoea [Unknown]
